FAERS Safety Report 16208005 (Version 1)
Quarter: 2019Q2

REPORT INFORMATION
  Report Type: Spontaneous
  Country: FR (occurrence: FR)
  Receive Date: 20190417
  Receipt Date: 20190417
  Transmission Date: 20190711
  Serious: Yes (Other)
  Sender: FDA-Public Use
  Company Number: FR-PFIZER INC-2019159605

PATIENT
  Age: 84 Year
  Sex: Male

DRUGS (4)
  1. ZELITREX [Concomitant]
     Active Substance: VALACYCLOVIR HYDROCHLORIDE
     Indication: ANTIVIRAL TREATMENT
     Dosage: 1200 MILLIGRAM, QD
     Route: 048
     Dates: start: 20190121
  2. FORTUM [CEFTAZIDIME PENTAHYDRATE] [Suspect]
     Active Substance: CEFTAZIDIME
     Indication: INFECTION
     Dosage: 3 G, 1X/DAY
     Route: 042
     Dates: start: 20190122, end: 20190124
  3. CIFLOX [CIPROFLOXACIN] [Concomitant]
     Active Substance: CIPROFLOXACIN
     Indication: INFECTION
     Dosage: UNK
     Route: 042
     Dates: start: 20190122
  4. EUPANTOL [Suspect]
     Active Substance: PANTOPRAZOLE SODIUM
     Indication: ABDOMINAL PAIN UPPER
     Dosage: UNK
     Route: 048
     Dates: end: 20190124

REACTIONS (1)
  - Neutropenia [Recovered/Resolved]

NARRATIVE: CASE EVENT DATE: 20190124
